FAERS Safety Report 9171410 (Version 1)
Quarter: 2013Q1

REPORT INFORMATION
  Report Type: Spontaneous
  Country: FR (occurrence: FR)
  Receive Date: 20130319
  Receipt Date: 20130319
  Transmission Date: 20140127
  Serious: Yes (Hospitalization)
  Sender: FDA-Public Use
  Company Number: FR-ROCHE-1203552

PATIENT
  Age: 86 Year
  Sex: Female

DRUGS (9)
  1. LUCENTIS [Suspect]
     Indication: AGE-RELATED MACULAR DEGENERATION
     Route: 050
     Dates: start: 200712
  2. LUCENTIS [Suspect]
     Route: 050
     Dates: start: 20080108
  3. LUCENTIS [Suspect]
     Route: 050
     Dates: start: 200802
  4. LUCENTIS [Suspect]
     Route: 050
     Dates: start: 200809
  5. LUCENTIS [Suspect]
     Route: 050
     Dates: start: 200901
  6. LUCENTIS [Suspect]
     Route: 050
     Dates: start: 20090415
  7. LUCENTIS [Suspect]
     Route: 050
     Dates: start: 20090513, end: 20090513
  8. LEVOTHYROX [Concomitant]
     Route: 065
  9. TAHOR [Concomitant]
     Route: 065

REACTIONS (1)
  - Aphasia [Recovered/Resolved]
